FAERS Safety Report 18348809 (Version 2)
Quarter: 2020Q4

REPORT INFORMATION
  Report Type: Report from Study
  Country: US (occurrence: US)
  Receive Date: 20201006
  Receipt Date: 20201012
  Transmission Date: 20210114
  Serious: Yes (Hospitalization)
  Sender: FDA-Public Use
  Company Number: US-TAIHO ONCOLOGY  INC-EU-2020-03550

PATIENT
  Age: 66 Year
  Sex: Male

DRUGS (12)
  1. MELOXICAM. [Concomitant]
     Active Substance: MELOXICAM
  2. OXYCODONE [Concomitant]
     Active Substance: OXYCODONE
  3. LOSARTAN POT [Concomitant]
     Active Substance: LOSARTAN POTASSIUM
  4. DULOXETINE. [Concomitant]
     Active Substance: DULOXETINE
  5. IRON [Concomitant]
     Active Substance: IRON
  6. NEXIUM [Concomitant]
     Active Substance: ESOMEPRAZOLE MAGNESIUM
  7. SILDENAFIL. [Concomitant]
     Active Substance: SILDENAFIL
  8. XTAMPZAER [Concomitant]
  9. ALLOPURINOL. [Concomitant]
     Active Substance: ALLOPURINOL
  10. MACRODANTIN [Concomitant]
     Active Substance: NITROFURANTOIN
  11. LONSURF [Suspect]
     Active Substance: TIPIRACIL HYDROCHLORIDE\TRIFLURIDINE
     Indication: COLON CANCER
     Dosage: CURRENT CYCLE UNKNOWN
     Route: 048
     Dates: start: 20200903
  12. CENTRUM [Concomitant]
     Active Substance: VITAMINS

REACTIONS (3)
  - Renal failure [Not Recovered/Not Resolved]
  - Fall [Not Recovered/Not Resolved]
  - Disease progression [Not Recovered/Not Resolved]

NARRATIVE: CASE EVENT DATE: 20200929
